FAERS Safety Report 6401534-0 (Version None)
Quarter: 2009Q4

REPORT INFORMATION
  Report Type: 
  Country: None (occurrence: None)
  Receive Date: 20091013
  Receipt Date: 20091013
  Transmission Date: 20100525
  Serious: No
  Sender: FDA-Public Use
  Company Number: None

PATIENT
  Age: 53 Year
  Sex: Female
  Weight: 65.7716 kg

DRUGS (2)
  1. BONIVA [Suspect]
     Indication: OSTEOPENIA
     Dosage: 150MG MONTHLY PO
     Route: 048
     Dates: start: 20070101, end: 20070201
  2. ACTONEL [Suspect]
     Indication: OSTEOPENIA
     Dosage: 35MG WEEKLY PO
     Route: 048
     Dates: start: 20080801, end: 20081201

REACTIONS (9)
  - ARTHRALGIA [None]
  - CHILLS [None]
  - DIZZINESS [None]
  - DYSPNOEA [None]
  - MALAISE [None]
  - NAUSEA [None]
  - PAIN IN EXTREMITY [None]
  - PAIN IN JAW [None]
  - URINE CALCIUM [None]
